FAERS Safety Report 19838804 (Version 1)
Quarter: 2021Q3

REPORT INFORMATION
  Report Type: Spontaneous
  Country: US (occurrence: US)
  Receive Date: 20210915
  Receipt Date: 20210915
  Transmission Date: 20211014
  Serious: Yes (Life-Threatening, Hospitalization)
  Sender: FDA-Public Use
  Company Number: None

PATIENT
  Age: 81 Year
  Sex: Female

DRUGS (1)
  1. DABIGATRAN [Suspect]
     Active Substance: DABIGATRAN

REACTIONS (4)
  - Haemoglobin decreased [None]
  - Blood creatinine increased [None]
  - Occult blood positive [None]
  - Hypoxia [None]

NARRATIVE: CASE EVENT DATE: 20210524
